FAERS Safety Report 7042838-0 (Version None)
Quarter: 2010Q4

REPORT INFORMATION
  Report Type: 
  Country: None (occurrence: None)
  Receive Date: 20101007
  Receipt Date: 20100920
  Transmission Date: 20110411
  Serious: Yes (Other)
  Sender: FDA-Public Use
  Company Number: JPI-P-012131

PATIENT
  Age: 61 Year
  Sex: Female
  Weight: 83.9154 kg

DRUGS (10)
  1. XYREM [Suspect]
     Indication: NARCOLEPSY
     Dosage: ORAL, 6 GM (3 GM, 2 IN 1 D), ORAL, 7 GM (3.5 GM, 2 IN 1 D), ORAL
     Route: 048
     Dates: start: 20050101
  2. XYREM [Suspect]
     Indication: NARCOLEPSY
     Dosage: ORAL, 6 GM (3 GM, 2 IN 1 D), ORAL, 7 GM (3.5 GM, 2 IN 1 D), ORAL
     Route: 048
     Dates: start: 20090201
  3. UNSPECIFIED DIURETIC (UNKNOWN) [Suspect]
     Indication: PRODUCT USED FOR UNKNOWN INDICATION
     Dates: end: 20100801
  4. METFORMIN HYDROCHLORIDE [Concomitant]
  5. GLIMEPIRIDE [Concomitant]
  6. LISINOPRIL [Concomitant]
  7. AMLODIPINE [Concomitant]
  8. CITALOPRAM HYDROBROMIDE [Concomitant]
  9. CITALOPRAM HYDROBROMIDE [Concomitant]
  10. SYNTHROID [Concomitant]

REACTIONS (3)
  - CALCIUM IONISED ABNORMAL [None]
  - CONDITION AGGRAVATED [None]
  - OSTEOARTHRITIS [None]
